FAERS Safety Report 6774094-2 (Version None)
Quarter: 2010Q2

REPORT INFORMATION
  Report Type: 
  Country: None (occurrence: None)
  Receive Date: 20100616
  Receipt Date: 20100616
  Transmission Date: 20101027
  Serious: Yes (Life-Threatening, Disabling, Other)
  Sender: FDA-Public Use
  Company Number: None

PATIENT
  Age: 48 Year
  Sex: Female
  Weight: 96.1626 kg

DRUGS (4)
  1. RISPERDAL [Suspect]
     Indication: DEPRESSION
     Dosage: 2MG TABLETS ONCE DAILY PO
     Route: 048
     Dates: start: 20080214, end: 20080619
  2. RISPERDAL [Suspect]
     Indication: INSOMNIA
     Dosage: 2MG TABLETS ONCE DAILY PO
     Route: 048
     Dates: start: 20080214, end: 20080619
  3. RISPERIDONE [Suspect]
     Indication: DEPRESSION
     Dosage: 3MG TABLETS ONCE DAILY PO
     Route: 048
     Dates: start: 20080731, end: 20081103
  4. RISPERIDONE [Suspect]
     Indication: INSOMNIA
     Dosage: 3MG TABLETS ONCE DAILY PO
     Route: 048
     Dates: start: 20080731, end: 20081103

REACTIONS (10)
  - ABNORMAL BEHAVIOUR [None]
  - ANXIETY [None]
  - BLADDER DISORDER [None]
  - DEPRESSION [None]
  - DYSGRAPHIA [None]
  - DYSKINESIA [None]
  - FEELING ABNORMAL [None]
  - IMPAIRED DRIVING ABILITY [None]
  - PAIN [None]
  - PARTNER STRESS [None]
